FAERS Safety Report 6632373-3 (Version None)
Quarter: 2010Q1

REPORT INFORMATION
  Report Type: 
  Country: None (occurrence: None)
  Receive Date: 20100312
  Receipt Date: 20100308
  Transmission Date: 20100710
  Serious: Yes (Other)
  Sender: FDA-Public Use
  Company Number: US-MERCK-1002USA02405

PATIENT
  Age: 63 Year
  Sex: Female

DRUGS (3)
  1. FOSAMAX [Suspect]
     Route: 048
  2. PANTOPRAZOLE [Concomitant]
     Route: 065
  3. RANITIDINE [Concomitant]
     Route: 065

REACTIONS (10)
  - ARTHROPATHY [None]
  - CARDIAC DISORDER [None]
  - DISCOMFORT [None]
  - GALLBLADDER DISORDER [None]
  - GOUTY ARTHRITIS [None]
  - MUSCLE SPASMS [None]
  - OESOPHAGEAL DISORDER [None]
  - PAIN [None]
  - STRESS [None]
  - THYROID DISORDER [None]
